FAERS Safety Report 15605674 (Version 1)
Quarter: 2018Q4

REPORT INFORMATION
  Report Type: Spontaneous
  Country: ES (occurrence: ES)
  Receive Date: 20181112
  Receipt Date: 20181112
  Transmission Date: 20190205
  Serious: Yes (Hospitalization)
  Sender: FDA-Public Use
  Company Number: ES-ACCORD-091980

PATIENT
  Age: 58 Year
  Sex: Male

DRUGS (2)
  1. METHOTREXATE. [Suspect]
     Active Substance: METHOTREXATE
     Indication: RHEUMATOID ARTHRITIS
     Route: 048
     Dates: start: 20140601
  2. ACFOL [Concomitant]
     Active Substance: FOLIC ACID
     Dosage: STRENGTH 5 MG, 28 TABLETS?RESCUE
     Route: 048
     Dates: start: 20140601, end: 20171123

REACTIONS (1)
  - Chromophobe renal cell carcinoma [Recovered/Resolved]

NARRATIVE: CASE EVENT DATE: 20171123
